FAERS Safety Report 9526879 (Version 2)
Quarter: 2014Q1

REPORT INFORMATION
  Report Type: Spontaneous
  Country: US (occurrence: None)
  Receive Date: 20130311
  Receipt Date: 20130606
  Transmission Date: 20141002
  Serious: No
  Sender: FDA-Public Use
  Company Number: 1212USA003466

PATIENT
  Age: 73 Year
  Sex: Female

DRUGS (3)
  1. ZIOPTAN [Suspect]
     Indication: INTRAOCULAR PRESSURE TEST
     Dosage: 1 GTT, RIGHT EYE, TOPICAL
     Route: 061
     Dates: start: 20121113, end: 20130225
  2. COSOPT [Suspect]
     Route: 047
  3. LEVOXYL [Concomitant]

REACTIONS (9)
  - Urinary tract infection [None]
  - Erythema [None]
  - Accidental exposure to product [None]
  - Oropharyngeal pain [None]
  - Cystitis [None]
  - Alopecia [None]
  - Glaucoma surgery [None]
  - Fatigue [None]
  - Adverse event [None]
